FAERS Safety Report 13207297 (Version 1)
Quarter: 2017Q1

REPORT INFORMATION
  Report Type: Spontaneous
  Country: US (occurrence: US)
  Receive Date: 20170209
  Receipt Date: 20170209
  Transmission Date: 20170428
  Serious: No
  Sender: FDA-Public Use
  Company Number: US-SA-2016SA236485

PATIENT
  Age: 67 Year
  Sex: Male
  Weight: 83.9 kg

DRUGS (6)
  1. PRILOSEC [Concomitant]
     Active Substance: OMEPRAZOLE MAGNESIUM
     Route: 048
     Dates: start: 20140810, end: 20170112
  2. PRALUENT [Suspect]
     Active Substance: ALIROCUMAB
     Indication: HYPERLIPIDAEMIA
     Route: 065
     Dates: start: 20161018
  3. ASA [Concomitant]
     Active Substance: ASPIRIN
     Route: 048
     Dates: start: 20010414
  4. ALIROCUMAB PREFILLED PEN [Concomitant]
     Active Substance: ALIROCUMAB
     Indication: HYPERLIPIDAEMIA
     Dates: start: 20161018
  5. COQ10 [Concomitant]
     Active Substance: UBIDECARENONE
     Route: 048
     Dates: start: 20150113
  6. VASCEPA [Concomitant]
     Active Substance: ICOSAPENT ETHYL
     Route: 048
     Dates: start: 20161219, end: 20170106

REACTIONS (1)
  - Nasopharyngitis [Recovered/Resolved]
